FAERS Safety Report 6332504-9 (Version None)
Quarter: 2009Q3

REPORT INFORMATION
  Report Type: 
  Country: None (occurrence: None)
  Receive Date: 20090828
  Receipt Date: 20081022
  Transmission Date: 20100115
  Serious: No
  Sender: FDA-Public Use
  Company Number: A0753764A

PATIENT
  Sex: Female
  Weight: 56.8 kg

DRUGS (1)
  1. MALARONE [Suspect]

REACTIONS (2)
  - DIARRHOEA [None]
  - FATIGUE [None]
